FAERS Safety Report 7777225-0 (Version None)
Quarter: 2011Q3

REPORT INFORMATION
  Report Type: 
  Country: None (occurrence: None)
  Receive Date: 20110926
  Receipt Date: 20110915
  Transmission Date: 20111222
  Serious: Yes (Other)
  Sender: FDA-Public Use
  Company Number: PHFR2011GB01114

PATIENT
  Sex: Female

DRUGS (1)
  1. CLOZAPINE [Suspect]
     Indication: SCHIZOPHRENIA, PARANOID TYPE
     Dosage: 300 MG, DAILY
     Route: 048
     Dates: start: 19991217

REACTIONS (6)
  - DYSPNOEA [None]
  - CHOKING [None]
  - MALAISE [None]
  - DIARRHOEA [None]
  - DEHYDRATION [None]
  - MATERNAL EXPOSURE DURING PREGNANCY [None]
